FAERS Safety Report 21812272 (Version 1)
Quarter: 2023Q1

REPORT INFORMATION
  Report Type: Spontaneous
  Country: IT (occurrence: IT)
  Receive Date: 20230103
  Receipt Date: 20230103
  Transmission Date: 20230418
  Serious: Yes (Hospitalization)
  Sender: FDA-Public Use
  Company Number: IT-BoehringerIngelheim-2023-BI-210738

PATIENT
  Age: 87 Year
  Sex: Male

DRUGS (1)
  1. PRADAXA [Suspect]
     Active Substance: DABIGATRAN ETEXILATE MESYLATE
     Indication: Product used for unknown indication

REACTIONS (6)
  - Gastritis [Unknown]
  - Hyponatraemia [Unknown]
  - Metabolic encephalopathy [Unknown]
  - Anaemia [Unknown]
  - Thrombotic microangiopathy [Unknown]
  - Faeces discoloured [Unknown]
